FAERS Safety Report 4582370-7 (Version None)
Quarter: 2005Q1

REPORT INFORMATION
  Report Type: 
  Country: None (occurrence: None)
  Receive Date: 20050119
  Receipt Date: 20031202
  Transmission Date: 20050727
  Serious: Yes (Other)
  Sender: FDA-Public Use
  Company Number: US-JNJFOC-20031200633

PATIENT
  Age: 56 Year
  Sex: Female
  Weight: 29.9374 kg

DRUGS (3)
  1. DOXIL [Suspect]
     Indication: OVARIAN CANCER
     Dosage: 40 MG, INTRAVENOUS
     Route: 042
     Dates: start: 20031126, end: 20031126
  2. ZOFRAN [Concomitant]
  3. DECADRON [Concomitant]

REACTIONS (5)
  - BRONCHOSPASM [None]
  - FLUSHING [None]
  - HEART RATE ABNORMAL [None]
  - INFUSION RELATED REACTION [None]
  - OXYGEN SATURATION DECREASED [None]
